FAERS Safety Report 4311133-2 (Version None)
Quarter: 2004Q1

REPORT INFORMATION
  Report Type: 
  Country: None (occurrence: None)
  Receive Date: 20040302
  Receipt Date: 20040302
  Transmission Date: 20041129
  Serious: Yes (Other)
  Sender: FDA-Public Use
  Company Number: None

PATIENT
  Sex: Male

DRUGS (1)
  1. METFORMIN HCL [Suspect]
     Indication: DIABETES MELLITUS
     Dosage: 1 PO BID
     Route: 048
     Dates: start: 20040217, end: 20040223

REACTIONS (3)
  - BLOOD GLUCOSE INCREASED [None]
  - MUSCLE CRAMP [None]
  - PHARMACEUTICAL PRODUCT COMPLAINT [None]
